FAERS Safety Report 5522554-4 (Version None)
Quarter: 2007Q4

REPORT INFORMATION
  Report Type: 
  Country: None (occurrence: None)
  Receive Date: 20071120
  Receipt Date: 20071112
  Transmission Date: 20080405
  Serious: Yes (Hospitalization)
  Sender: FDA-Public Use
  Company Number: JP-SANOFI-SYNTHELABO-A01200712978

PATIENT
  Sex: Male

DRUGS (3)
  1. LEUCOVORIN CALCIUM [Suspect]
     Route: 042
     Dates: start: 20070801, end: 20070801
  2. FLUOROURACIL [Suspect]
     Dosage: 400 MG/M2 BOLUS THEN 600 MG/M2 INFUSION
     Route: 042
     Dates: start: 20070801, end: 20070801
  3. OXALIPLATIN [Suspect]
     Indication: LARGE INTESTINE CARCINOMA
     Route: 042
     Dates: start: 20070801, end: 20070801

REACTIONS (1)
  - RESTLESSNESS [None]
